FAERS Safety Report 12737979 (Version 2)
Quarter: 2016Q4

REPORT INFORMATION
  Report Type: Spontaneous
  Country: GB (occurrence: GB)
  Receive Date: 20160913
  Receipt Date: 20161003
  Transmission Date: 20170207
  Serious: Yes (Hospitalization, Other)
  Sender: FDA-Public Use
  Company Number: GB-TEVA-690874ACC

PATIENT
  Age: 18 Year
  Sex: Female
  Weight: 69 kg

DRUGS (1)
  1. METOCLOPRAMIDE. [Suspect]
     Active Substance: METOCLOPRAMIDE
     Indication: ABDOMINAL PAIN UPPER
     Route: 048
     Dates: start: 20160729, end: 20160731

REACTIONS (3)
  - Oculogyric crisis [Unknown]
  - Dystonia [Recovered/Resolved]
  - Swollen tongue [Unknown]

NARRATIVE: CASE EVENT DATE: 20160731
